FAERS Safety Report 5922906-4 (Version None)
Quarter: 2008Q4

REPORT INFORMATION
  Report Type: 
  Country: None (occurrence: None)
  Receive Date: 20081017
  Receipt Date: 20081009
  Transmission Date: 20090506
  Serious: Yes (Hospitalization)
  Sender: FDA-Public Use
  Company Number: US-GENENTECH-269583

PATIENT
  Sex: Male

DRUGS (1)
  1. RITUXAN [Suspect]
     Indication: IDIOPATHIC THROMBOCYTOPENIC PURPURA
     Dosage: 750 MG, 1/WEEK
     Route: 042
     Dates: start: 20080908

REACTIONS (2)
  - DIVERTICULITIS [None]
  - LARGE INTESTINE PERFORATION [None]
